FAERS Safety Report 25702505 (Version 1)
Quarter: 2025Q3

REPORT INFORMATION
  Report Type: Spontaneous
  Country: EU (occurrence: EU)
  Receive Date: 20250819
  Receipt Date: 20250819
  Transmission Date: 20251021
  Serious: Yes (Hospitalization)
  Sender: PFIZER
  Company Number: None

PATIENT
  Age: 72 Year
  Sex: Female

DRUGS (5)
  1. SPIRONOLACTONE [Interacting]
     Active Substance: SPIRONOLACTONE
     Dosage: 1 DF, 1X/DAY
  2. ARCOXIA [Interacting]
     Active Substance: ETORICOXIB
     Indication: Arthritis
     Route: 048
  3. ATORVASTATIN [Concomitant]
     Active Substance: ATORVASTATIN
     Dosage: 1 DF, 1X/DAY
  4. LANSOPRAZOLE [Concomitant]
     Active Substance: LANSOPRAZOLE
     Dosage: 1 DF, 1X/DAY
  5. DAPAGLIFLOZIN [Concomitant]
     Active Substance: DAPAGLIFLOZIN
     Dosage: 1 DF, 1X/DAY

REACTIONS (6)
  - Dyspnoea exertional [Recovering/Resolving]
  - Ejection fraction decreased [Recovering/Resolving]
  - Mitral valve incompetence [Recovering/Resolving]
  - Pericardial effusion [Recovering/Resolving]
  - Heart failure with reduced ejection fraction [Recovering/Resolving]
  - Drug interaction [Recovering/Resolving]

NARRATIVE: CASE EVENT DATE: 20250501
